FAERS Safety Report 11740931 (Version 2)
Quarter: 2015Q4

REPORT INFORMATION
  Report Type: Report from Study
  Country: GB (occurrence: GB)
  Receive Date: 20151115
  Receipt Date: 20151214
  Transmission Date: 20160304
  Serious: Yes (Other)
  Sender: FDA-Public Use
  Company Number: GB-ROCHE-1082845

PATIENT
  Age: 64 Year
  Sex: Male
  Weight: 92.7 kg

DRUGS (26)
  1. RITUXIMAB [Suspect]
     Active Substance: RITUXIMAB
     Indication: NON-HODGKIN^S LYMPHOMA
     Dosage: LAST DOSE PRIOR TO SAEON 02/FEB/2012
     Route: 042
     Dates: start: 20120202, end: 20120202
  2. COTRIMOXAZOLE [Concomitant]
     Active Substance: SULFAMETHOXAZOLE\TRIMETHOPRIM
     Route: 065
     Dates: start: 20120202, end: 20120223
  3. ALLOPURINOL. [Concomitant]
     Active Substance: ALLOPURINOL
     Indication: PROPHYLAXIS
     Route: 065
     Dates: start: 20120202, end: 20120223
  4. GRANISETRON [Concomitant]
     Active Substance: GRANISETRON
     Route: 065
     Dates: start: 20120202, end: 20120525
  5. OMEPRAZOLE. [Concomitant]
     Active Substance: OMEPRAZOLE
     Route: 065
     Dates: start: 20120202, end: 20120216
  6. COTRIMOXAZOLE [Concomitant]
     Active Substance: SULFAMETHOXAZOLE\TRIMETHOPRIM
     Route: 065
     Dates: start: 20120302, end: 20120613
  7. CHLORHEXIDINE [Concomitant]
     Active Substance: CHLORHEXIDINE
     Route: 065
     Dates: start: 20120202, end: 20120223
  8. RITUXIMAB [Suspect]
     Active Substance: RITUXIMAB
     Dosage: TEMPORARILY INTERRUPTED
     Route: 058
     Dates: start: 20120615
  9. FLUCONAZOLE. [Concomitant]
     Active Substance: FLUCONAZOLE
     Route: 065
     Dates: start: 20120302, end: 20120615
  10. RITUXIMAB [Suspect]
     Active Substance: RITUXIMAB
     Dosage: TEMPORARILY INTERRUPTED
     Route: 058
     Dates: start: 20120504
  11. GRANISETRON [Concomitant]
     Active Substance: GRANISETRON
     Route: 065
     Dates: start: 20120302, end: 20120302
  12. PREDNISOLONE. [Concomitant]
     Active Substance: PREDNISOLONE
     Route: 065
     Dates: start: 20120202
  13. OMEPRAZOLE. [Concomitant]
     Active Substance: OMEPRAZOLE
     Route: 065
     Dates: start: 20120302, end: 20120608
  14. CHLORHEXIDINE [Concomitant]
     Active Substance: CHLORHEXIDINE
     Route: 065
     Dates: start: 20120302, end: 20120615
  15. RITUXIMAB [Suspect]
     Active Substance: RITUXIMAB
     Dosage: TEMPORARILY INTERRUPTED
     Route: 058
     Dates: start: 20120413
  16. RITUXIMAB [Suspect]
     Active Substance: RITUXIMAB
     Dosage: DOSE INTERRUPTED
     Route: 058
     Dates: start: 20120706
  17. RITUXIMAB [Suspect]
     Active Substance: RITUXIMAB
     Dosage: DOSE INTERRUPTED
     Route: 058
     Dates: start: 20120824
  18. RITUXIMAB [Suspect]
     Active Substance: RITUXIMAB
     Route: 058
     Dates: start: 20121022
  19. FLUCONAZOLE. [Concomitant]
     Active Substance: FLUCONAZOLE
     Indication: FUNGAL INFECTION
     Route: 065
     Dates: start: 20120202, end: 20120223
  20. METOCLOPRAMIDE. [Concomitant]
     Active Substance: METOCLOPRAMIDE
     Indication: MALAISE
     Route: 065
     Dates: start: 20120202, end: 20120528
  21. CETIRIZINE HYDROCHLORIDE. [Concomitant]
     Active Substance: CETIRIZINE HYDROCHLORIDE
     Indication: SEASONAL ALLERGY
     Route: 065
     Dates: start: 20120515, end: 20121016
  22. RITUXIMAB [Suspect]
     Active Substance: RITUXIMAB
     Indication: NON-HODGKIN^S LYMPHOMA
     Dosage: TEMPORARILY INTERRUPTED
     Route: 058
     Dates: start: 20120202
  23. RITUXIMAB [Suspect]
     Active Substance: RITUXIMAB
     Dosage: TEMPORARILY INTERRUPTED
     Route: 058
     Dates: start: 20120323
  24. RITUXIMAB [Suspect]
     Active Substance: RITUXIMAB
     Dosage: TEMPORARILY INTERRUPTED
     Route: 058
     Dates: start: 20120525
  25. PARACETAMOL [Concomitant]
     Active Substance: ACETAMINOPHEN
     Route: 065
     Dates: start: 20120202
  26. CHLORHEXIDINE [Concomitant]
     Active Substance: CHLORHEXIDINE
     Route: 065
     Dates: end: 20120706

REACTIONS (2)
  - Dyspepsia [Recovered/Resolved]
  - Urticaria [Recovered/Resolved]

NARRATIVE: CASE EVENT DATE: 20120202
